FAERS Safety Report 16357446 (Version 17)
Quarter: 2020Q4

REPORT INFORMATION
  Report Type: Report from Study
  Country: None (occurrence: NL)
  Receive Date: 20190527
  Receipt Date: 20201203
  Transmission Date: 20210113
  Serious: Yes (Hospitalization)
  Sender: FDA-Public Use
  Company Number: NL-ABBVIE-19S-114-2736250-00

PATIENT
  Sex: Female
  Weight: 70 kg

DRUGS (22)
  1. ENTACAPONE. [Concomitant]
     Active Substance: ENTACAPONE
     Indication: PRODUCT USED FOR UNKNOWN INDICATION
  2. ETORICOXIB. [Concomitant]
     Active Substance: ETORICOXIB
     Indication: PRODUCT USED FOR UNKNOWN INDICATION
  3. DUODOPA [Suspect]
     Active Substance: CARBIDOPA\LEVODOPA
     Dosage: CONTINUOUS DOSE INCREASED WITH 6.0, 5 EXTRA DOSES A DAY
     Route: 050
     Dates: start: 2019, end: 2019
  4. DUODOPA [Suspect]
     Active Substance: CARBIDOPA\LEVODOPA
     Dosage: MD 7.5 CD 6.0 AND 2.2 ED, NIGHTPUMP CD 2.5 AND ED 1.2
     Route: 050
     Dates: start: 2019
  5. PRAMIPEXOL [Concomitant]
     Active Substance: PRAMIPEXOLE
     Indication: PRODUCT USED FOR UNKNOWN INDICATION
     Route: 048
     Dates: start: 20200408
  6. PRAVASTATIN. [Concomitant]
     Active Substance: PRAVASTATIN
     Indication: PRODUCT USED FOR UNKNOWN INDICATION
  7. DUODOPA [Suspect]
     Active Substance: CARBIDOPA\LEVODOPA
     Dosage: MD 7.5 CD 6.2 ED 2.4 CND 2.7 END 1.4
     Route: 050
  8. DUODOPA [Suspect]
     Active Substance: CARBIDOPA\LEVODOPA
     Dosage: MD 7.7 ML CD 6.3 ML/H ED 2.7 ML CND 3.3 ML/H ED 1.6 ML?REMAINS AT 24 HOURS
     Route: 050
  9. RIVASTIGMINE. [Concomitant]
     Active Substance: RIVASTIGMINE
     Indication: PRODUCT USED FOR UNKNOWN INDICATION
  10. CLOPIDOGREL [Concomitant]
     Active Substance: CLOPIDOGREL BISULFATE
     Indication: PRODUCT USED FOR UNKNOWN INDICATION
  11. PANTOPRAZOL [Concomitant]
     Active Substance: PANTOPRAZOLE SODIUM
     Indication: PRODUCT USED FOR UNKNOWN INDICATION
  12. DUODOPA [Suspect]
     Active Substance: CARBIDOPA\LEVODOPA
     Indication: PARKINSON^S DISEASE
     Dosage: MD 7.0 CD 5.8 ED 2.2 CND 2.5 END 1.2, 24 HOURS
     Route: 050
     Dates: start: 20190312, end: 2019
  13. DUODOPA [Suspect]
     Active Substance: CARBIDOPA\LEVODOPA
     Dosage: MD 7.5 CD 6.0 ED 2.4 CND 2.7
     Route: 050
  14. FAMOTIDINE. [Concomitant]
     Active Substance: FAMOTIDINE
     Indication: PRODUCT USED FOR UNKNOWN INDICATION
  15. METOPROLOL. [Concomitant]
     Active Substance: METOPROLOL
     Indication: PRODUCT USED FOR UNKNOWN INDICATION
  16. VITAMIN B COMPLEX [Concomitant]
     Active Substance: CYANOCOBALAMIN\DEXPANTHENOL\NIACINAMIDE\PYRIDOXINE HYDROCHLORIDE\RIBOFLAVIN 5^-PHOSPHATE SODIUM\THIAMINE HYDROCHLORIDE\VITAMIN B COMPLEX
     Indication: PRODUCT USED FOR UNKNOWN INDICATION
  17. DUODOPA [Suspect]
     Active Substance: CARBIDOPA\LEVODOPA
     Dosage: CONTINUOUS DOSE INCREASED WITH 5.8 MILLILITER
     Route: 050
     Dates: start: 2019, end: 2019
  18. MACROGOL [Concomitant]
     Active Substance: POLYETHYLENE GLYCOLS
     Indication: ABNORMAL FAECES
  19. MOVICOLON [Concomitant]
     Active Substance: POLYETHYLENE GLYCOL 3350\POTASSIUM CHLORIDE\SODIUM BICARBONATE\SODIUM CHLORIDE
     Indication: ABNORMAL FAECES
  20. AMLODIPINE [Concomitant]
     Active Substance: AMLODIPINE BESYLATE
     Indication: PRODUCT USED FOR UNKNOWN INDICATION
  21. PARACETAMOL [Concomitant]
     Active Substance: ACETAMINOPHEN
     Indication: PRODUCT USED FOR UNKNOWN INDICATION
  22. CLOZAPINE. [Concomitant]
     Active Substance: CLOZAPINE
     Indication: PRODUCT USED FOR UNKNOWN INDICATION

REACTIONS (50)
  - Incontinence [Not Recovered/Not Resolved]
  - Memory impairment [Not Recovered/Not Resolved]
  - Malaise [Recovered/Resolved]
  - Device occlusion [Unknown]
  - Anxiety [Recovered/Resolved]
  - Stoma site irritation [Recovering/Resolving]
  - Dyskinesia [Unknown]
  - Depressed mood [Unknown]
  - Stoma site discharge [Unknown]
  - Muscle spasms [Not Recovered/Not Resolved]
  - Arthropathy [Unknown]
  - Dysphagia [Recovered/Resolved]
  - Nocturia [Unknown]
  - Cognitive disorder [Not Recovered/Not Resolved]
  - Arthralgia [Not Recovered/Not Resolved]
  - Abnormal dreams [Not Recovered/Not Resolved]
  - Fine motor skill dysfunction [Not Recovered/Not Resolved]
  - Musculoskeletal stiffness [Not Recovered/Not Resolved]
  - Urinary tract infection [Not Recovered/Not Resolved]
  - Abnormal faeces [Recovered/Resolved]
  - Apraxia [Not Recovered/Not Resolved]
  - Speech disorder [Unknown]
  - Mood swings [Unknown]
  - Depression [Unknown]
  - Unevaluable event [Recovered/Resolved]
  - Migraine [Not Recovered/Not Resolved]
  - Suspiciousness [Recovered/Resolved]
  - Dystonia [Not Recovered/Not Resolved]
  - Hallucination [Recovered/Resolved]
  - Freezing phenomenon [Unknown]
  - Therapeutic product effect variable [Unknown]
  - Balance disorder [Unknown]
  - Adjustment disorder [Not Recovered/Not Resolved]
  - Medical device site dryness [Unknown]
  - Fall [Not Recovered/Not Resolved]
  - On and off phenomenon [Not Recovered/Not Resolved]
  - Sensitive skin [Recovered/Resolved]
  - Eye movement disorder [Not Recovered/Not Resolved]
  - Rehabilitation therapy [Recovered/Resolved]
  - Feeling jittery [Not Recovered/Not Resolved]
  - Muscle rigidity [Unknown]
  - Somnolence [Not Recovered/Not Resolved]
  - Stoma site erythema [Unknown]
  - Syncope [Not Recovered/Not Resolved]
  - Feeling abnormal [Unknown]
  - Alexithymia [Not Recovered/Not Resolved]
  - Memory impairment [Not Recovered/Not Resolved]
  - Emotional disorder [Recovered/Resolved]
  - Gait disturbance [Not Recovered/Not Resolved]
  - Feeling abnormal [Unknown]

NARRATIVE: CASE EVENT DATE: 2019
